FAERS Safety Report 5484439-1 (Version None)
Quarter: 2007Q4

REPORT INFORMATION
  Report Type: 
  Country: None (occurrence: None)
  Receive Date: 20071012
  Receipt Date: 20071004
  Transmission Date: 20080405
  Serious: Yes (Death, Hospitalization)
  Sender: FDA-Public Use
  Company Number: CH-MERCK-0710CHE00015

PATIENT
  Age: 58 Year
  Sex: Male

DRUGS (9)
  1. PRIMAXIN [Suspect]
     Indication: INFLAMMATION
     Route: 065
     Dates: start: 20011101
  2. MITOMYCIN [Concomitant]
     Indication: LARGE CELL LUNG CANCER STAGE II
     Route: 065
     Dates: start: 20010801, end: 20010901
  3. VINORELBINE TARTRATE [Concomitant]
     Indication: LARGE CELL LUNG CANCER STAGE II
     Route: 065
     Dates: start: 20010801, end: 20010901
  4. CISPLATIN [Concomitant]
     Indication: LARGE CELL LUNG CANCER STAGE II
     Route: 065
     Dates: start: 20010801, end: 20010901
  5. CLARITHROMYCIN [Concomitant]
     Indication: INFLAMMATION
     Route: 065
     Dates: start: 20011101
  6. METHYLPREDNISOLONE [Concomitant]
     Route: 065
     Dates: start: 20011201, end: 20010101
  7. METHYLPREDNISOLONE [Concomitant]
     Route: 065
     Dates: start: 20011201, end: 20010101
  8. METHYLPREDNISOLONE [Concomitant]
     Route: 065
     Dates: start: 20011201, end: 20010101
  9. PREDNISOLONE [Concomitant]
     Route: 065
     Dates: start: 20010101, end: 20010101

REACTIONS (3)
  - PATHOGEN RESISTANCE [None]
  - RESPIRATORY FAILURE [None]
  - SEPTIC SHOCK [None]
